FAERS Safety Report 8850713 (Version 1)
Quarter: 2012Q4

REPORT INFORMATION
  Report Type: 
  Country: US (occurrence: US)
  Receive Date: 20121019
  Receipt Date: 20121019
  Transmission Date: 20130627
  Serious: Yes (Death)
  Sender: FDA-Public Use
  Company Number: US-ROCHE-1132380

PATIENT
  Sex: Male

DRUGS (4)
  1. XELODA [Suspect]
     Indication: COLON CANCER
     Route: 048
     Dates: start: 20091012, end: 20100329
  2. CONSTULOSE [Concomitant]
  3. ROXANOL [Concomitant]
  4. LORAZEPAM [Concomitant]

REACTIONS (3)
  - Death [Fatal]
  - Abdominal pain [Unknown]
  - Disease progression [Unknown]
